FAERS Safety Report 23084968 (Version 1)
Quarter: 2023Q4

REPORT INFORMATION
  Report Type: Spontaneous
  Country: US (occurrence: US)
  Receive Date: 20231019
  Receipt Date: 20231019
  Transmission Date: 20240109
  Serious: No
  Sender: FDA-Public Use
  Company Number: US-PFIZER INC-202300320746

PATIENT

DRUGS (1)
  1. CHLORTHALIDONE [Suspect]
     Active Substance: CHLORTHALIDONE
     Indication: Blood pressure increased
     Dosage: 25 MILLIGRAM, QD
     Route: 065

REACTIONS (3)
  - Decreased appetite [Unknown]
  - Illness [Unknown]
  - Asthenia [Unknown]
